FAERS Safety Report 15187971 (Version 2)
Quarter: 2018Q3

REPORT INFORMATION
  Report Type: Spontaneous
  Country: US (occurrence: US)
  Receive Date: 20180724
  Receipt Date: 20180903
  Transmission Date: 20181010
  Serious: No
  Sender: FDA-Public Use
  Company Number: US-BAUSCH-BL-2018-003235

PATIENT
  Sex: Female
  Weight: 68.1 kg

DRUGS (1)
  1. JUBLIA [Suspect]
     Active Substance: EFINACONAZOLE
     Indication: FUNGAL SKIN INFECTION
     Dosage: ^^WHATEVER COMES OUT^^
     Route: 061
     Dates: start: 201612

REACTIONS (2)
  - Product use in unapproved indication [Not Recovered/Not Resolved]
  - Drug effect incomplete [Not Recovered/Not Resolved]
